FAERS Safety Report 16696811 (Version 1)
Quarter: 2019Q4

REPORT INFORMATION
  Report Type: Spontaneous
  Country: US (occurrence: US)
  Receive Date: 20190812
  Receipt Date: 20190812
  Transmission Date: 20200122
  Serious: No
  Sender: FDA-Public Use
  Company Number: None

PATIENT
  Sex: Male

DRUGS (1)
  1. MIDODRINE [Suspect]
     Active Substance: MIDODRINE

REACTIONS (2)
  - Drug ineffective [None]
  - Hypotension [None]
